FAERS Safety Report 4949462-1 (Version None)
Quarter: 2006Q1

REPORT INFORMATION
  Report Type: 
  Country: None (occurrence: None)
  Receive Date: 20060321
  Receipt Date: 20060314
  Transmission Date: 20060701
  Serious: Yes (Other)
  Sender: FDA-Public Use
  Company Number: PHBS2006NL03841

PATIENT
  Age: 72 Year
  Sex: Male

DRUGS (5)
  1. LIPITOR [Concomitant]
     Indication: HYPERCHOLESTEROLAEMIA
     Dosage: 20 MG, QD
     Dates: start: 20030401
  2. ACENOCOUMAROL [Concomitant]
     Indication: ATRIAL FIBRILLATION
     Route: 058
     Dates: start: 20030401
  3. LOMETAZEPAM [Concomitant]
     Indication: SLEEP DISORDER
     Dosage: 1 MG, QH
  4. EMCOR [Concomitant]
     Indication: HYPERTENSION
     Dosage: 2.5 MG, QD
     Dates: start: 20030401
  5. DIOVAN [Suspect]
     Indication: HYPERTENSION
     Dosage: 80 MG, UNK
     Dates: start: 20030407, end: 20060308

REACTIONS (1)
  - RETINITIS [None]
